FAERS Safety Report 10153335 (Version 2)
Quarter: 2014Q2

REPORT INFORMATION
  Report Type: Spontaneous
  Country: US (occurrence: US)
  Receive Date: 20140505
  Receipt Date: 20140523
  Transmission Date: 20141212
  Serious: Yes (Other)
  Sender: FDA-Public Use
  Company Number: US-JNJFOC-20140500838

PATIENT
  Age: 57 Year
  Sex: Male
  Weight: 112.04 kg

DRUGS (7)
  1. CANAGLIFLOZIN [Suspect]
     Indication: TYPE 2 DIABETES MELLITUS
     Route: 048
  2. CANAGLIFLOZIN [Suspect]
     Indication: TYPE 2 DIABETES MELLITUS
     Route: 048
  3. NOVOLOG 70/30 INSULIN [Concomitant]
     Indication: TYPE 2 DIABETES MELLITUS
  4. NOVOLOG 70/30 INSULIN [Concomitant]
     Indication: TYPE 2 DIABETES MELLITUS
  5. NOVOLOG 70/30 INSULIN [Concomitant]
     Indication: TYPE 2 DIABETES MELLITUS
  6. LIRAGLUTIDE [Concomitant]
     Indication: TYPE 2 DIABETES MELLITUS
     Route: 058
  7. LIRAGLUTIDE [Concomitant]
     Indication: TYPE 2 DIABETES MELLITUS
     Route: 058

REACTIONS (3)
  - Weight decreased [Not Recovered/Not Resolved]
  - Body mass index decreased [Not Recovered/Not Resolved]
  - Physical examination abnormal [Not Recovered/Not Resolved]
